FAERS Safety Report 10236396 (Version 2)
Quarter: 2014Q2

REPORT INFORMATION
  Report Type: Report from Study
  Country: JP (occurrence: JP)
  Receive Date: 20140613
  Receipt Date: 20140613
  Transmission Date: 20141212
  Serious: Yes (Hospitalization)
  Sender: FDA-Public Use
  Company Number: PHHO2014JP002851

PATIENT
  Age: 39 Year
  Sex: Male
  Weight: 77 kg

DRUGS (5)
  1. LDK378 [Suspect]
     Indication: LUNG NEOPLASM MALIGNANT
     Dosage: 750 MG, UNK
     Route: 048
     Dates: start: 20140128, end: 20140128
  2. LDK378 [Suspect]
     Dosage: 750 MG, QD
     Route: 048
     Dates: start: 20140131, end: 20140228
  3. LDK378 [Suspect]
     Dosage: 750 MG, QD
     Route: 048
     Dates: start: 20140315
  4. LOPENA [Concomitant]
     Indication: DIARRHOEA
     Dosage: UNK
     Route: 048
     Dates: start: 20140128
  5. BIO-THREE [Concomitant]
     Indication: PROPHYLAXIS AGAINST DIARRHOEA
     Dosage: 3 DF, UNK
     Route: 048
     Dates: start: 20140128

REACTIONS (1)
  - Chest pain [Recovered/Resolved]
